FAERS Safety Report 16766186 (Version 10)
Quarter: 2020Q4

REPORT INFORMATION
  Report Type: Report from Study
  Country: FR (occurrence: FR)
  Receive Date: 20190903
  Receipt Date: 20201001
  Transmission Date: 20210113
  Serious: Yes (Hospitalization, Other)
  Sender: FDA-Public Use
  Company Number: FR-MYLANLABS-2019M1052814

PATIENT
  Age: 60 Year
  Sex: Male
  Weight: 54 kg

DRUGS (14)
  1. ADOPORT [Suspect]
     Active Substance: TACROLIMUS
     Dosage: 1.5 MILLIGRAM
     Route: 048
     Dates: start: 20181101
  2. PREDNISONE. [Suspect]
     Active Substance: PREDNISONE
     Dosage: 15 MILLIGRAM, QD (15 MG, 1X/DAY)
     Route: 065
     Dates: start: 20181121
  3. ADOPORT [Suspect]
     Active Substance: TACROLIMUS
     Dosage: 1.5 MILLIGRAM
     Route: 048
  4. ADOPORT [Suspect]
     Active Substance: TACROLIMUS
     Dosage: 3 MILLIGRAM, QD
     Route: 048
  5. PREDNISONE. [Suspect]
     Active Substance: PREDNISONE
     Dosage: 10 MILLIGRAM, QD (10 MG, 1X/DAY)
     Route: 065
     Dates: start: 20181208
  6. ROVALCYTE [Concomitant]
     Active Substance: VALGANCICLOVIR HYDROCHLORIDE
     Indication: ANTIVIRAL PROPHYLAXIS
     Dosage: 450 MILLIGRAM, QD
     Route: 065
     Dates: start: 20181109, end: 20190911
  7. METHYLPREDNISOLONE. [Suspect]
     Active Substance: METHYLPREDNISOLONE
     Dosage: 125 MG, QD (125 MG, 1X/DAY)
     Route: 065
     Dates: start: 20181102, end: 20181102
  8. PREDNISONE. [Suspect]
     Active Substance: PREDNISONE
     Indication: IMMUNOSUPPRESSANT DRUG THERAPY
     Dosage: 20 MG, QD (20 MG, 1X/DAY)
     Route: 065
     Dates: start: 20181103
  9. ADOPORT [Suspect]
     Active Substance: TACROLIMUS
     Dosage: 5 MILLIGRAM
     Route: 048
     Dates: start: 20181101
  10. METHYLPREDNISOLONE. [Suspect]
     Active Substance: METHYLPREDNISOLONE
     Indication: IMMUNOSUPPRESSANT DRUG THERAPY
     Dosage: 500 MILLIGRAM,QD(500 MG,1X/DAY)
     Route: 065
     Dates: start: 20181101, end: 20181101
  11. ADOPORT [Suspect]
     Active Substance: TACROLIMUS
     Dosage: 2 MILLIGRAM
     Route: 048
  12. LYRICA [Suspect]
     Active Substance: PREGABALIN
     Indication: CERVICOBRACHIAL SYNDROME
     Dosage: UNK
     Route: 065
     Dates: start: 20190929, end: 20191001
  13. ADOPORT [Suspect]
     Active Substance: TACROLIMUS
     Indication: RENAL TRANSPLANT
     Dosage: 3 MILLIGRAM, QD (3 MG, 1X/DAY)
     Route: 048
     Dates: start: 20181101
  14. CELLCEPT [Concomitant]
     Active Substance: MYCOPHENOLATE MOFETIL\MYCOPHENOLATE MOFETIL HYDROCHLORIDE
     Indication: PRODUCT USED FOR UNKNOWN INDICATION
     Dosage: 500 MILLIGRAM, QD
     Route: 065
     Dates: start: 20181101, end: 20190926

REACTIONS (11)
  - Staphylococcal infection [Recovered/Resolved]
  - Diarrhoea [Recovered/Resolved]
  - Anaemia [Recovered/Resolved]
  - Hypokalaemia [Recovering/Resolving]
  - Abscess neck [Recovered/Resolved]
  - Leukopenia [Recovered/Resolved]
  - Paronychia [Unknown]
  - Muscle spasms [Recovered/Resolved]
  - Neutropenia [Recovered/Resolved]
  - Steroid diabetes [Recovered/Resolved]
  - Blood phosphorus decreased [Recovered/Resolved]

NARRATIVE: CASE EVENT DATE: 20181101
